FAERS Safety Report 19155942 (Version 1)
Quarter: 2021Q2

REPORT INFORMATION
  Report Type: Spontaneous
  Country: US (occurrence: US)
  Receive Date: 20210419
  Receipt Date: 20210419
  Transmission Date: 20210717
  Serious: No
  Sender: FDA-Public Use
  Company Number: US-PFIZER INC-2021247596

PATIENT
  Age: 72 Year
  Sex: Female
  Weight: 98.43 kg

DRUGS (2)
  1. ALBUTEROL [SALBUTAMOL] [Concomitant]
     Active Substance: ALBUTEROL
  2. TESSALON [Suspect]
     Active Substance: BENZONATATE
     Indication: COUGH
     Dosage: UNK

REACTIONS (2)
  - Condition aggravated [Unknown]
  - Pyrexia [Unknown]
